FAERS Safety Report 9064709 (Version 1)
Quarter: 2013Q1

REPORT INFORMATION
  Report Type: Report from Study
  Country: US (occurrence: US)
  Receive Date: 20130131
  Receipt Date: 20130131
  Transmission Date: 20140127
  Serious: Yes (Other)
  Sender: FDA-Public Use
  Company Number: US-ABBOTT-12P-163-1010061-00

PATIENT
  Age: 57 Year
  Sex: Male

DRUGS (9)
  1. HUMIRA PEN [Suspect]
     Indication: PSORIASIS
  2. FOLBEE [Concomitant]
     Indication: PRODUCT USED FOR UNKNOWN INDICATION
  3. LOVASTATIN [Concomitant]
     Indication: BLOOD CHOLESTEROL INCREASED
  4. OMEPRAZOLE [Concomitant]
     Indication: GASTROOESOPHAGEAL REFLUX DISEASE
  5. AMLODIPINE [Concomitant]
     Indication: HYPERTENSION
  6. MULTIVITAMIN [Concomitant]
     Indication: PRODUCT USED FOR UNKNOWN INDICATION
  7. SPIRIVA [Concomitant]
     Indication: ASTHMA
  8. SPIRONOLACTONE [Concomitant]
     Indication: SALT INTOXICATION
  9. KLOR-CON [Concomitant]
     Indication: BLOOD POTASSIUM DECREASED

REACTIONS (3)
  - Nephrolithiasis [Recovering/Resolving]
  - Injection site papule [Recovered/Resolved]
  - Injection site discolouration [Recovered/Resolved]
